FAERS Safety Report 14927394 (Version 2)
Quarter: 2018Q3

REPORT INFORMATION
  Report Type: Spontaneous
  Country: US (occurrence: US)
  Receive Date: 20180523
  Receipt Date: 20180809
  Transmission Date: 20181010
  Serious: No
  Sender: FDA-Public Use
  Company Number: US-PFIZER INC-2018209847

PATIENT
  Age: 72 Year
  Sex: Female

DRUGS (1)
  1. LYRICA [Suspect]
     Active Substance: PREGABALIN
     Indication: FIBROMYALGIA
     Dosage: 75 MG, 3X/DAY
     Dates: start: 20171125

REACTIONS (3)
  - Confusional state [Recovered/Resolved]
  - Malaise [Recovered/Resolved]
  - Feeling hot [Recovered/Resolved]
